FAERS Safety Report 17323831 (Version 2)
Quarter: 2021Q1

REPORT INFORMATION
  Report Type: Spontaneous
  Country: US (occurrence: US)
  Receive Date: 20200127
  Receipt Date: 20210320
  Transmission Date: 20210419
  Serious: No
  Sender: FDA-Public Use
  Company Number: US-SHIRE-US202002859

PATIENT
  Sex: Male
  Weight: 84 kg

DRUGS (8)
  1. KEFLEX [Concomitant]
     Active Substance: CEPHALEXIN
     Indication: PRODUCT USED FOR UNKNOWN INDICATION
  2. LAMICTAL [Concomitant]
     Active Substance: LAMOTRIGINE
     Indication: PRODUCT USED FOR UNKNOWN INDICATION
  3. LIDOCAINE. [Concomitant]
     Active Substance: LIDOCAINE
     Indication: PRODUCT USED FOR UNKNOWN INDICATION
  4. EPINEPHRINE. [Concomitant]
     Active Substance: EPINEPHRINE
     Indication: PRODUCT USED FOR UNKNOWN INDICATION
  5. NADOLOL. [Concomitant]
     Active Substance: NADOLOL
     Indication: PRODUCT USED FOR UNKNOWN INDICATION
  6. CUVITRU [Suspect]
     Active Substance: HUMAN IMMUNOGLOBULIN G
     Indication: IMMUNODEFICIENCY COMMON VARIABLE
     Dosage: 40 GRAM, 1X/2WKS
     Route: 058
     Dates: start: 20170128
  7. DIPHENHYDRAMINE. [Concomitant]
     Active Substance: DIPHENHYDRAMINE
     Indication: PRODUCT USED FOR UNKNOWN INDICATION
  8. WELLBUTRIN [Concomitant]
     Active Substance: BUPROPION HYDROCHLORIDE
     Indication: PRODUCT USED FOR UNKNOWN INDICATION

REACTIONS (3)
  - Ear infection [Unknown]
  - Sinusitis [Unknown]
  - Product dose omission issue [Unknown]
